FAERS Safety Report 15269488 (Version 1)
Quarter: 2018Q3

REPORT INFORMATION
  Report Type: Spontaneous
  Country: US (occurrence: US)
  Receive Date: 20180726
  Receipt Date: 20180726
  Transmission Date: 20181010
  Serious: Yes (Other)
  Sender: FDA-Public Use
  Company Number: None

PATIENT
  Age: 46 Year
  Sex: Female
  Weight: 2.54 kg

DRUGS (1)
  1. DR. KINGS AQUAFLORA HIGH POTENCY 9 MULTI STRAIN CANDIDA FORMULA BROAD [Suspect]
     Active Substance: HOMEOPATHICS
     Indication: CANDIDA INFECTION
     Route: 048
     Dates: start: 20180411, end: 20180428

REACTIONS (11)
  - Skin exfoliation [None]
  - Fatigue [None]
  - Joint swelling [None]
  - Rash [None]
  - Pruritus [None]
  - Oedema peripheral [None]
  - Bacterial infection [None]
  - Urticaria [None]
  - Abdominal pain [None]
  - Swelling face [None]
  - Wound [None]

NARRATIVE: CASE EVENT DATE: 20180417
